FAERS Safety Report 13492994 (Version 1)
Quarter: 2017Q2

REPORT INFORMATION
  Report Type: Spontaneous
  Country: JP (occurrence: JP)
  Receive Date: 20170427
  Receipt Date: 20170427
  Transmission Date: 20170830
  Serious: Yes (Life-Threatening, Other)
  Sender: FDA-Public Use
  Company Number: JP-SUN PHARMACEUTICAL INDUSTRIES LTD-2017RR-139096

PATIENT
  Age: 36 Year
  Sex: Male
  Weight: 95.5 kg

DRUGS (3)
  1. PREDNISOLONE. [Suspect]
     Active Substance: PREDNISOLONE
     Indication: CARDIAC FAILURE
     Dosage: 30 MG, DAILY
     Route: 065
  2. POTASSIUM IODIDE. [Suspect]
     Active Substance: POTASSIUM IODIDE
     Indication: CARDIAC FAILURE
     Dosage: 200 MG, DAILY
     Route: 065
  3. METHIMAZOLE. [Suspect]
     Active Substance: METHIMAZOLE
     Indication: CARDIAC FAILURE
     Dosage: 80 MG, DAILY, 80 MG DIVIDED OVER 4 TIMES/DAY
     Route: 065

REACTIONS (1)
  - Drug ineffective [Unknown]
